FAERS Safety Report 14094480 (Version 2)
Quarter: 2018Q1

REPORT INFORMATION
  Report Type: Spontaneous
  Country: IT (occurrence: IT)
  Receive Date: 20171016
  Receipt Date: 20180312
  Transmission Date: 20180508
  Serious: Yes (Life-Threatening)
  Sender: FDA-Public Use
  Company Number: IT-PFIZER INC-2017442467

PATIENT
  Age: 65 Year
  Sex: Female
  Weight: 67 kg

DRUGS (1)
  1. OXALIPLATIN. [Suspect]
     Active Substance: OXALIPLATIN
     Indication: RECTAL CANCER STAGE II
     Dosage: 150 MG, MONTHLY
     Route: 041
     Dates: start: 20170919, end: 20170919

REACTIONS (3)
  - Throat tightness [Recovered/Resolved]
  - Dyspnoea [Recovered/Resolved]
  - Dysphonia [Recovered/Resolved]

NARRATIVE: CASE EVENT DATE: 20170919
